FAERS Safety Report 7807663-9 (Version None)
Quarter: 2011Q4

REPORT INFORMATION
  Report Type: 
  Country: None (occurrence: None)
  Receive Date: 20111011
  Receipt Date: 20111003
  Transmission Date: 20120403
  Serious: Yes (Hospitalization)
  Sender: FDA-Public Use
  Company Number: US-ASTRAZENECA-2011SE33657

PATIENT
  Age: 60 Year
  Sex: Female

DRUGS (4)
  1. ENALAPRIL MALEATE [Concomitant]
  2. ATACAND [Suspect]
     Route: 048
  3. LISINOPRIL [Suspect]
     Route: 048
  4. MICARDIS [Concomitant]

REACTIONS (3)
  - RENAL DISORDER [None]
  - RENAL FAILURE [None]
  - DRUG INEFFECTIVE [None]
